FAERS Safety Report 5818434-7 (Version None)
Quarter: 2008Q3

REPORT INFORMATION
  Report Type: 
  Country: None (occurrence: None)
  Receive Date: 20080716
  Receipt Date: 20080701
  Transmission Date: 20090109
  Serious: Yes (Hospitalization)
  Sender: FDA-Public Use
  Company Number: 8034183

PATIENT
  Age: 64 Year
  Sex: Male

DRUGS (9)
  1. PREDNISOLONE [Suspect]
  2. ATENOLOL [Suspect]
  3. CO-PROXAMOL /00016701/ [Suspect]
  4. ENBREL [Suspect]
     Indication: RHEUMATOID ARTHRITIS
     Dosage: 25 MG 2/W
     Dates: start: 20060323
  5. METHOTREXATE [Suspect]
  6. VIOXX [Suspect]
  7. CALCIUM [Concomitant]
  8. GLICLAZIDE [Concomitant]
  9. VITAMIN D [Concomitant]

REACTIONS (2)
  - DIVERTICULUM [None]
  - ENTEROVESICAL FISTULA [None]
